APPROVED DRUG PRODUCT: LUXIQ
Active Ingredient: BETAMETHASONE VALERATE
Strength: 0.12% **Federal Register determination that product was not discontinued or withdrawn for safety or effectiveness reasons**
Dosage Form/Route: AEROSOL, FOAM;TOPICAL
Application: N020934 | Product #001
Applicant: PHARMOBEDIENT CONSULTING LLC
Approved: Feb 28, 1999 | RLD: Yes | RS: No | Type: DISCN